FAERS Safety Report 8369882-5 (Version None)
Quarter: 2012Q2

REPORT INFORMATION
  Report Type: 
  Country: None (occurrence: None)
  Receive Date: 20120518
  Receipt Date: 20120507
  Transmission Date: 20120825
  Serious: Yes (Other)
  Sender: FDA-Public Use
  Company Number: CA-JNJFOC-20120507668

PATIENT
  Sex: Male
  Weight: 57.9 kg

DRUGS (15)
  1. ASACOL [Concomitant]
     Route: 065
  2. VITAMIN D [Concomitant]
     Route: 065
  3. HYDROCHLOROTHIAZIDE [Concomitant]
     Route: 065
  4. TRANDOLAPRIL [Concomitant]
     Route: 065
  5. PANTOPRAZOLE SODIUM [Concomitant]
     Route: 065
  6. DOCUSATE [Concomitant]
     Route: 065
  7. ATIVAN [Concomitant]
     Route: 065
  8. MULTI-VITAMINS [Concomitant]
     Route: 065
  9. ACTONEL [Concomitant]
     Route: 065
  10. REMICADE [Suspect]
     Dosage: 23RD INFUSION
     Route: 042
     Dates: start: 20120312
  11. REMICADE [Suspect]
     Indication: CROHN'S DISEASE
     Route: 042
     Dates: start: 20080911
  12. IMURAN [Concomitant]
     Route: 048
  13. CALCIUM [Concomitant]
     Route: 065
  14. FER-IN-SOL [Concomitant]
     Route: 065
  15. ASPIRIN [Concomitant]
     Route: 065

REACTIONS (3)
  - HAEMATOCHEZIA [None]
  - BLOOD PRESSURE INCREASED [None]
  - CONSTIPATION [None]
